FAERS Safety Report 4524065-1 (Version None)
Quarter: 2004Q4

REPORT INFORMATION
  Report Type: 
  Country: None (occurrence: None)
  Receive Date: 20041209
  Receipt Date: 20041129
  Transmission Date: 20050328
  Serious: Yes (Life-Threatening, Hospitalization, Other)
  Sender: FDA-Public Use
  Company Number: 2004014761

PATIENT
  Age: 58 Year
  Sex: Male

DRUGS (24)
  1. LIPITOR [Suspect]
     Indication: HYPERLIPIDAEMIA
     Dosage: 10 MG (1 IN 1 D), ORAL
     Route: 048
     Dates: start: 20030711, end: 20031121
  2. VALPROATE SODIUM [Suspect]
     Indication: BIPOLAR I DISORDER
     Dosage: 800 MG (1 IN 1 D), ORAL
     Route: 048
     Dates: start: 20031121, end: 20031210
  3. LITHIUM CARBONATE [Suspect]
     Indication: BIPOLAR I DISORDER
     Dosage: 600 MG (1 IN 1 D), ORAL
     Route: 048
     Dates: start: 20031118, end: 20031121
  4. LEVOMEPROMAZINE (LEVOMEPROMAZINE) [Suspect]
     Indication: BIPOLAR I DISORDER
     Dosage: 25 MG (1 IN 1 D), ORAL
     Route: 048
     Dates: start: 19991125, end: 20031211
  5. CHLORPROMAZINE [Suspect]
     Indication: BIPOLAR I DISORDER
     Dosage: 125 MG (1 IN 1 D), ORAL
     Route: 048
     Dates: start: 20031118, end: 20031121
  6. RISPERDAL [Concomitant]
  7. FLUNITRAZEPAM (FLUNITRAZEPAM) [Concomitant]
  8. ZOPICLONE (ZOPICLONE) [Concomitant]
  9. ESTAZOLAM [Concomitant]
  10. ETIZOLAM (ETIZOLAM) [Concomitant]
  11. OLANZAPINE [Concomitant]
  12. CLONAZEPAM [Concomitant]
  13. SENNA LEAF (SENNA LEAF) [Concomitant]
  14. AMLODIPINE BESYLATE [Concomitant]
  15. MAPROTILINE HYDROCHLORIDE [Concomitant]
  16. SULPIRIDE (SULPIRIDE) [Concomitant]
  17. VEGETAMIN (CHLORPROMAZINE HYDROCHLORIDE, PHENOBARBITAL, PROMETHAZINE H [Concomitant]
  18. MAGNESIUM OXIDE (MAGNESIUM OXIDE) [Concomitant]
  19. NITRAZEPAM [Concomitant]
  20. BETHANECHOL CHLORIDE (BETHANECHOL CHLORIDE) [Concomitant]
  21. CLONAZEPAM [Concomitant]
  22. BECLOMETHASONE DIPROPIONATE [Concomitant]
  23. FENOTEROL HYDROBROMIDE (FENOTEROL HYDROBROMIDE) [Concomitant]
  24. LATANOPROST [Concomitant]

REACTIONS (16)
  - ALANINE AMINOTRANSFERASE INCREASED [None]
  - ANURIA [None]
  - BLOOD CHOLESTEROL INCREASED [None]
  - BLOOD GLUCOSE INCREASED [None]
  - BLOOD TRIGLYCERIDES INCREASED [None]
  - DIFFERENTIAL WHITE BLOOD CELL COUNT ABNORMAL [None]
  - DISEASE RECURRENCE [None]
  - DRUG INTERACTION [None]
  - GAMMA-GLUTAMYLTRANSFERASE INCREASED [None]
  - HAEMODIALYSIS [None]
  - MOVEMENT DISORDER [None]
  - OVERDOSE [None]
  - RENAL FAILURE ACUTE [None]
  - RHABDOMYOLYSIS [None]
  - SENSORY LOSS [None]
  - WHITE BLOOD CELL COUNT INCREASED [None]
